FAERS Safety Report 8807522 (Version 4)
Quarter: 2012Q4

REPORT INFORMATION
  Report Type: 
  Country: FR (occurrence: FR)
  Receive Date: 20120925
  Receipt Date: 20121122
  Transmission Date: 20130627
  Serious: Yes (Disabling, Other)
  Sender: FDA-Public Use
  Company Number: FR-PFIZER INC-2010113317

PATIENT
  Age: 28 Year
  Sex: Female

DRUGS (15)
  1. ARACYTINE [Suspect]
     Indication: ACUTE MYELOBLASTIC LEUKEMIA
     Dosage: 200 mg/m2 (355 mg from D1 to D2 and 354 mg from D3 to D7)
     Route: 042
     Dates: start: 19990828, end: 19990903
  2. ARACYTINE [Suspect]
     Dosage: 3000 mg/m2 (5280 mg twice daily from D1 to D4)
     Route: 042
     Dates: start: 19990913, end: 19990916
  3. BUSULFAN [Suspect]
     Indication: ACUTE MYELOBLASTIC LEUKEMIA
     Dosage: 70 mg, 4x/day (from D1 to D4)
     Route: 048
     Dates: start: 20000219, end: 20000222
  4. IDARUBICIN HYDROCHLORIDE [Concomitant]
     Indication: ACUTE MYELOBLASTIC LEUKEMIA
     Dosage: 8 mg/m2 (14.2 mg on D1,D2 and 14.16 mg from D3 to D5)
     Route: 042
     Dates: start: 19990828, end: 19990901
  5. MITOXANTRONE [Concomitant]
     Indication: ACUTE MYELOBLASTIC LEUKEMIA
     Dosage: 12 mg/m2, 2x/day (21.12 mg per day on D5 and D6)
     Dates: start: 19990917, end: 19990918
  6. ENDOXAN [Concomitant]
     Indication: ACUTE MYELOBLASTIC LEUKEMIA
     Dosage: 200 mg/kg, UNK
     Dates: start: 1999
  7. AMSACRINE [Concomitant]
     Indication: ACUTE MYELOID LEUKAEMIA
     Dosage: 150 mg/m2 (ie 265.5 mg per day from D1 to D5)
     Route: 042
     Dates: start: 19991209, end: 19991213
  8. VP-16 [Concomitant]
     Indication: ACUTE MYELOID LEUKAEMIA
     Dosage: 100 mg/m2, (176 mg  on D1 and 177 mg from D2 to D5)
     Route: 042
     Dates: start: 19991209, end: 19991213
  9. LEVOTHYROX [Concomitant]
     Indication: HYPOTHYROIDISM
     Dosage: 1 DF, 1x/day
     Dates: start: 2009
  10. OXYBUTYNIN [Concomitant]
     Dosage: 1 DF, 4x/day
  11. PROGESTERONE [Concomitant]
     Dosage: UNK
  12. EDUCTYL [Concomitant]
     Dosage: 1 DF, 1x/day
  13. ALENDRONATE SODIUM [Concomitant]
     Dosage: 1 DF, weekly
  14. METHYLPREDNISOLONE [Concomitant]
     Indication: ACUTE MYELOID LEUKAEMIA
     Dosage: 1 mg/kg, (69 mg from D1 to D4)
     Route: 042
     Dates: start: 19990913, end: 19990916
  15. MELPHALAN [Concomitant]
     Indication: ACUTE MYELOID LEUKAEMIA
     Dosage: 140 mg/m2, 1x/day (247.8 mg on D5)
     Route: 042
     Dates: start: 20000223, end: 20000223

REACTIONS (6)
  - Toxic skin eruption [Unknown]
  - Myelitis transverse [Not Recovered/Not Resolved]
  - Premature menopause [Not Recovered/Not Resolved]
  - Cerebellar syndrome [Not Recovered/Not Resolved]
  - Alopecia [Not Recovered/Not Resolved]
  - Mucosal inflammation [Recovered/Resolved]
